FAERS Safety Report 8570787-5 (Version None)
Quarter: 2012Q3

REPORT INFORMATION
  Report Type: 
  Country: None (occurrence: None)
  Receive Date: 20120806
  Receipt Date: 20120801
  Transmission Date: 20120928
  Serious: Yes (Hospitalization, Other)
  Sender: FDA-Public Use
  Company Number: US-AMGEN-USASP2012048302

PATIENT
  Age: 57 Year
  Sex: Female

DRUGS (1)
  1. ENBREL [Suspect]
     Indication: RHEUMATOID ARTHRITIS
     Dosage: 50 MG, QWK
     Dates: start: 20090706

REACTIONS (9)
  - LIGAMENT SPRAIN [None]
  - FALL [None]
  - HAND FRACTURE [None]
  - HEAD INJURY [None]
  - OEDEMA PERIPHERAL [None]
  - LOSS OF CONSCIOUSNESS [None]
  - INJECTION SITE HAEMORRHAGE [None]
  - KNEE ARTHROPLASTY [None]
  - INJECTION SITE HAEMATOMA [None]
